FAERS Safety Report 4559595-X (Version None)
Quarter: 2005Q1

REPORT INFORMATION
  Report Type: 
  Country: None (occurrence: None)
  Receive Date: 20050113
  Receipt Date: 20041002
  Transmission Date: 20050727
  Serious: Yes (Other)
  Sender: FDA-Public Use
  Company Number: 372617

PATIENT
  Sex: Male

DRUGS (2)
  1. FUZEON [Suspect]
  2. ACCUTANE [Suspect]
     Indication: ACNE
     Dosage: ORAL
     Route: 048

REACTIONS (5)
  - ADVERSE EVENT [None]
  - DRY SKIN [None]
  - JOINT SWELLING [None]
  - OEDEMA PERIPHERAL [None]
  - SKIN DISORDER [None]
